FAERS Safety Report 25744601 (Version 1)
Quarter: 2025Q3

REPORT INFORMATION
  Report Type: Spontaneous
  Country: AR (occurrence: AR)
  Receive Date: 20250901
  Receipt Date: 20250901
  Transmission Date: 20251021
  Serious: Yes (Other)
  Sender: AMGEN
  Company Number: AR-PFIZER INC-202500170439

PATIENT
  Age: 62 Year
  Sex: Female

DRUGS (8)
  1. ENBREL [Suspect]
     Active Substance: ETANERCEPT
     Indication: Rheumatoid arthritis
     Dosage: 50 MG, WEEKLY
     Route: 065
     Dates: start: 20250220, end: 20250815
  2. Clindamycine-300 [Concomitant]
  3. LEFLUNOMIDE [Concomitant]
     Active Substance: LEFLUNOMIDE
  4. HYDROCHLOROTHIAZIDE\LOSARTAN POTASSIUM [Concomitant]
     Active Substance: HYDROCHLOROTHIAZIDE\LOSARTAN POTASSIUM
  5. CLONAZEPAM [Concomitant]
     Active Substance: CLONAZEPAM
  6. RIVAROXABAN [Concomitant]
     Active Substance: RIVAROXABAN
  7. Paf [Concomitant]
  8. Drinax r [Concomitant]

REACTIONS (10)
  - Thrombosis [Recovered/Resolved]
  - Cellulitis [Unknown]
  - Swelling face [Unknown]
  - Urticaria [Unknown]
  - Influenza [Unknown]
  - COVID-19 [Unknown]
  - Bronchitis [Unknown]
  - Inflammation [Unknown]
  - Fluid retention [Unknown]
  - Product dose omission in error [Unknown]

NARRATIVE: CASE EVENT DATE: 20250101
